FAERS Safety Report 18292281 (Version 1)
Quarter: 2020Q3

REPORT INFORMATION
  Report Type: Spontaneous
  Country: GB (occurrence: GB)
  Receive Date: 20200922
  Receipt Date: 20200922
  Transmission Date: 20201103
  Serious: Yes (Hospitalization)
  Sender: FDA-Public Use
  Company Number: GB-ASTRAZENECA-2020SF19585

PATIENT
  Age: 92 Year
  Sex: Female

DRUGS (7)
  1. QUETIAPINE. [Suspect]
     Active Substance: QUETIAPINE
     Route: 048
  2. LORAZEPAM. [Concomitant]
     Active Substance: LORAZEPAM
  3. PREGABALIN. [Concomitant]
     Active Substance: PREGABALIN
  4. CANDESARTAN. [Concomitant]
     Active Substance: CANDESARTAN
  5. RIVASTIGMINE. [Concomitant]
     Active Substance: RIVASTIGMINE
  6. CO?CARELDOPA [Concomitant]
     Active Substance: CARBIDOPA\LEVODOPA
  7. ESOMEPRAZOLE. [Concomitant]
     Active Substance: ESOMEPRAZOLE MAGNESIUM

REACTIONS (1)
  - Parkinson^s disease [Recovering/Resolving]
